FAERS Safety Report 11073618 (Version 1)
Quarter: 2015Q2

REPORT INFORMATION
  Report Type: Spontaneous
  Country: FR (occurrence: FR)
  Receive Date: 20150428
  Receipt Date: 20150428
  Transmission Date: 20150821
  Serious: Yes (Hospitalization, Other)
  Sender: FDA-Public Use
  Company Number: PHHY2015FR047474

PATIENT
  Age: 31 Year
  Sex: Male

DRUGS (2)
  1. COCAINE [Interacting]
     Active Substance: COCAINE
     Indication: PRODUCT USED FOR UNKNOWN INDICATION
     Route: 065
  2. TRAMADOL [Suspect]
     Active Substance: TRAMADOL
     Indication: PRODUCT USED FOR UNKNOWN INDICATION
     Route: 065

REACTIONS (10)
  - Drug interaction [Unknown]
  - Seizure [Unknown]
  - Cardio-respiratory arrest [Unknown]
  - Acidosis [Unknown]
  - Chills [Unknown]
  - Nausea [Unknown]
  - Acute kidney injury [Unknown]
  - Overdose [Unknown]
  - Hyperhidrosis [Unknown]
  - Headache [Unknown]
